FAERS Safety Report 23712680 (Version 1)
Quarter: 2024Q2

REPORT INFORMATION
  Report Type: Report from Study
  Country: PR (occurrence: PR)
  Receive Date: 20240405
  Receipt Date: 20240405
  Transmission Date: 20240715
  Serious: Yes (Other)
  Sender: FDA-Public Use
  Company Number: PR-ABBVIE-5703943

PATIENT
  Sex: Female
  Weight: 86 kg

DRUGS (12)
  1. HUMIRA [Suspect]
     Active Substance: ADALIMUMAB
     Indication: Rheumatoid arthritis
     Dosage: FORM STRENGTH: 40MILLIGRAM
     Route: 058
     Dates: start: 2017, end: 202403
  2. ZOCOR [Concomitant]
     Active Substance: SIMVASTATIN
     Indication: Blood cholesterol abnormal
     Dosage: START DATE TEXT: MORE THAN 10 YEARS
     Route: 048
  3. NEURONTIN [Concomitant]
     Active Substance: GABAPENTIN
     Indication: Rheumatoid arthritis
     Dosage: START DATE TEXT: MORE THAN 10 YEARS
     Route: 048
  4. METHOTREXATE [Concomitant]
     Active Substance: METHOTREXATE
     Indication: Rheumatoid arthritis
     Dosage: START DATE TEXT: MORE THAN 10 YEARS
  5. SYNTHROID [Concomitant]
     Active Substance: LEVOTHYROXINE SODIUM
     Indication: Hyperthyroidism
     Dosage: START DATE TEXT: MORE THAN 10 YEARS
     Route: 048
  6. SINGULAIR [Concomitant]
     Active Substance: MONTELUKAST SODIUM
     Indication: Asthma
     Dosage: START DATE TEXT: MORE THAN 10 YEARS AGO
     Route: 048
  7. PREDNISONE [Concomitant]
     Active Substance: PREDNISONE
     Indication: Rheumatoid arthritis
     Dosage: 10MG/5MG,?START DATE TEXT: MORE THAN 10 YEARS
     Route: 048
  8. XARELTO [Concomitant]
     Active Substance: RIVAROXABAN
     Indication: Cardiac disorder
     Dosage: START DATE TEXT: MORE THAN 10 YEARS AGO
     Route: 048
  9. FLONASE [Concomitant]
     Active Substance: FLUTICASONE PROPIONATE
     Indication: Asthma
     Dosage: START DATE TEXT: MORE THAN 10 YEARS AGO
     Route: 048
  10. FOLIC ACID [Concomitant]
     Active Substance: FOLIC ACID
     Indication: Rheumatoid arthritis
     Dosage: START DATE TEXT: MORE THAN 10 YEARS
     Route: 048
  11. COZAAR [Concomitant]
     Active Substance: LOSARTAN POTASSIUM
     Indication: Hypertension
     Dosage: START DATE TEXT: MORE THAN 10 YEARS AGO
     Route: 048
  12. ADVAIR HFA [Concomitant]
     Active Substance: FLUTICASONE PROPIONATE\SALMETEROL XINAFOATE
     Indication: Asthma
     Dosage: START DATE TEXT: MORE THAN 10 YEARS
     Route: 048

REACTIONS (9)
  - Pulmonary hypertension [Recovering/Resolving]
  - Decreased appetite [Recovering/Resolving]
  - Oropharyngeal discomfort [Recovering/Resolving]
  - Asthenia [Recovering/Resolving]
  - Scleroderma [Recovering/Resolving]
  - Nausea [Recovering/Resolving]
  - Weight decreased [Recovering/Resolving]
  - Cough [Recovering/Resolving]
  - Cardiomegaly [Recovering/Resolving]

NARRATIVE: CASE EVENT DATE: 20200101
